FAERS Safety Report 4299445-2 (Version None)
Quarter: 2004Q1

REPORT INFORMATION
  Report Type: 
  Country: None (occurrence: None)
  Receive Date: 20040219
  Receipt Date: 20040213
  Transmission Date: 20041129
  Serious: Yes (Other)
  Sender: FDA-Public Use
  Company Number: US-ROCHE-359041

PATIENT
  Age: 61 Year
  Sex: Female
  Weight: 152 kg

DRUGS (1)
  1. XENICAL [Suspect]
     Indication: DRUG USE FOR UNKNOWN INDICATION
     Route: 048

REACTIONS (4)
  - ASTHMA [None]
  - CARDIAC FAILURE [None]
  - CARDIOMYOPATHY [None]
  - WEIGHT INCREASED [None]
